FAERS Safety Report 9652537 (Version 1)
Quarter: 2013Q4

REPORT INFORMATION
  Report Type: Spontaneous
  Country: US (occurrence: US)
  Receive Date: 20131029
  Receipt Date: 20131029
  Transmission Date: 20140711
  Serious: Yes (Hospitalization, Other)
  Sender: FDA-Public Use
  Company Number: US-ROXANE LABORATORIES, INC.-2013-RO-01745RO

PATIENT
  Age: 45 Year
  Sex: Male

DRUGS (3)
  1. SERTRALINE [Suspect]
     Indication: DEPRESSION
     Dosage: 100 MG
  2. CITALOPRAM [Suspect]
     Indication: DEPRESSION
     Dosage: 20 MG
  3. OMEPRAZOLE [Concomitant]

REACTIONS (2)
  - Mania [Recovered/Resolved]
  - Drug ineffective [Unknown]
